FAERS Safety Report 6734541-9 (Version None)
Quarter: 2010Q2

REPORT INFORMATION
  Report Type: 
  Country: None (occurrence: None)
  Receive Date: 20100520
  Receipt Date: 20100510
  Transmission Date: 20101027
  Serious: Yes (Hospitalization, Other)
  Sender: FDA-Public Use
  Company Number: US-ABBOTT-10P-163-0643774-00

PATIENT
  Sex: Female
  Weight: 81.72 kg

DRUGS (1)
  1. NIASPAN [Suspect]
     Indication: BLOOD CHOLESTEROL INCREASED
     Dates: start: 20100401

REACTIONS (4)
  - ABDOMINAL PAIN UPPER [None]
  - DIVERTICULITIS [None]
  - FLUSHING [None]
  - PYREXIA [None]
